FAERS Safety Report 9127490 (Version 1)
Quarter: 2013Q1

REPORT INFORMATION
  Report Type: Spontaneous
  Country: US (occurrence: US)
  Receive Date: 20130228
  Receipt Date: 20130228
  Transmission Date: 20140127
  Serious: No
  Sender: FDA-Public Use
  Company Number: US-GLAXOSMITHKLINE-A0979332A

PATIENT
  Age: 54 Year
  Sex: Female

DRUGS (2)
  1. LAMICTAL [Suspect]
     Indication: BIPOLAR DISORDER
     Dosage: 200MG PER DAY
     Route: 048
     Dates: start: 201105
  2. PRO-AIR [Concomitant]

REACTIONS (7)
  - Dizziness [Not Recovered/Not Resolved]
  - Dyspnoea [Unknown]
  - Increased upper airway secretion [Unknown]
  - Dizziness [Unknown]
  - Dysphonia [Unknown]
  - Fatigue [Unknown]
  - Dizziness [Unknown]
